FAERS Safety Report 11469009 (Version 1)
Quarter: 2015Q3

REPORT INFORMATION
  Report Type: Spontaneous
  Country: VE (occurrence: VE)
  Receive Date: 20150908
  Receipt Date: 20150908
  Transmission Date: 20151125
  Serious: Yes (Hospitalization, Other)
  Sender: FDA-Public Use
  Company Number: VE-PFIZER INC-2015289905

PATIENT
  Age: 38 Year
  Sex: Male

DRUGS (6)
  1. IBUPROFEN. [Suspect]
     Active Substance: IBUPROFEN
     Indication: ODYNOPHAGIA
     Dosage: UNK
  2. IBUPROFEN. [Suspect]
     Active Substance: IBUPROFEN
     Indication: ASTHENIA
  3. CEFADROXIL. [Suspect]
     Active Substance: CEFADROXIL
     Indication: DYSPHAGIA
  4. IBUPROFEN. [Suspect]
     Active Substance: IBUPROFEN
     Indication: DYSPHAGIA
  5. CEFADROXIL. [Suspect]
     Active Substance: CEFADROXIL
     Indication: ODYNOPHAGIA
     Dosage: UNK
  6. CEFADROXIL. [Suspect]
     Active Substance: CEFADROXIL
     Indication: ASTHENIA

REACTIONS (1)
  - Toxic epidermal necrolysis [Recovered/Resolved]
